FAERS Safety Report 11869712 (Version 2)
Quarter: 2016Q1

REPORT INFORMATION
  Report Type: Spontaneous
  Country: GB (occurrence: GB)
  Receive Date: 20151228
  Receipt Date: 20160222
  Transmission Date: 20160526
  Serious: Yes (Death, Other)
  Sender: FDA-Public Use
  Company Number: GB-PFIZER INC-2015446473

PATIENT
  Age: 70 Year
  Sex: Female
  Weight: 50 kg

DRUGS (15)
  1. CRIZOTINIB [Suspect]
     Active Substance: CRIZOTINIB
     Dosage: 200 MG, 2X/DAY
     Route: 048
     Dates: end: 20150928
  2. SENNA [Concomitant]
     Active Substance: SENNA LEAF\SENNOSIDES\SENNOSIDES A AND B
     Dosage: 7.5 MG, 1X/DAY(AT NIGHT)
  3. DEXAMETHASONE. [Concomitant]
     Active Substance: DEXAMETHASONE
     Dosage: 2 MG, DAILY
  4. ENOXAPARIN [Concomitant]
     Active Substance: ENOXAPARIN
     Dosage: 80 MG, 1X/DAY
  5. FRESUBIN [Concomitant]
     Active Substance: AMINO ACIDS\DEXTROSE\ELECTROLYTES NOS\SOYBEAN OIL\VITAMINS
     Dosage: 1 DF, DAILY
  6. NYSTATIN. [Concomitant]
     Active Substance: NYSTATIN
     Dosage: 3 ML, 4X/DAY
  7. RANITIDINE [Concomitant]
     Active Substance: RANITIDINE\RANITIDINE HYDROCHLORIDE
     Dosage: 150 MG, 2X/DAY
  8. CRIZOTINIB [Suspect]
     Active Substance: CRIZOTINIB
     Indication: LUNG ADENOCARCINOMA
     Dosage: 250 MG, 2X/DAY
     Route: 048
     Dates: start: 20150807
  9. CO-AMOXICLAV [Concomitant]
     Active Substance: AMOXICILLIN\CLAVULANIC ACID
     Indication: INFECTIOUS PLEURAL EFFUSION
     Dosage: 625 MG, 3X/DAY
     Dates: end: 20150831
  10. DIAZEPAM. [Concomitant]
     Active Substance: DIAZEPAM
     Dosage: AT NIGHT.
  11. OXYNORM [Concomitant]
     Active Substance: OXYCODONE HYDROCHLORIDE
     Dosage: 2.5 ML, AS NEEDED
  12. METOCLOPRAMIDE. [Concomitant]
     Active Substance: METOCLOPRAMIDE
     Dosage: 10 MG, AS NEEDED
  13. LAXIDO [Concomitant]
     Active Substance: POLYETHYLENE GLYCOL 3350\POTASSIUM CHLORIDE\SODIUM BICARBONATE\SODIUM CHLORIDE
     Dosage: 1 DF, DAILY(SACHET)
  14. ZOPICLONE [Concomitant]
     Active Substance: ZOPICLONE
     Dosage: 3.75 MG, 1X/DAY(AT NIGHT)
  15. CRIZOTINIB [Suspect]
     Active Substance: CRIZOTINIB
     Dosage: 100 MG, 2X/DAY
     Route: 048
     Dates: start: 20151002

REACTIONS (5)
  - Nephrogenic systemic fibrosis [Not Recovered/Not Resolved]
  - Oedema peripheral [Not Recovered/Not Resolved]
  - Alanine aminotransferase increased [Not Recovered/Not Resolved]
  - Acute kidney injury [Fatal]
  - Pulmonary oedema [Not Recovered/Not Resolved]

NARRATIVE: CASE EVENT DATE: 20150928
